FAERS Safety Report 9679246 (Version 1)
Quarter: 2013Q4

REPORT INFORMATION
  Report Type: Report from Study
  Country: CA (occurrence: CA)
  Receive Date: 20131109
  Receipt Date: 20131109
  Transmission Date: 20140711
  Serious: Yes (Death)
  Sender: FDA-Public Use
  Company Number: CA-ROCHE-1299976

PATIENT
  Age: 87 Year
  Sex: 0

DRUGS (4)
  1. RITUXAN [Suspect]
     Indication: B-CELL LYMPHOMA
     Route: 065
     Dates: start: 20121130, end: 20121130
  2. VINCRISTINE SULFATE [Suspect]
     Indication: B-CELL LYMPHOMA
     Route: 065
     Dates: start: 20121130, end: 20121130
  3. PREDNISONE [Suspect]
     Indication: B-CELL LYMPHOMA
     Route: 065
     Dates: start: 20121130, end: 20121130
  4. CYCLOPHOSPHAMIDE [Suspect]
     Indication: B-CELL LYMPHOMA
     Route: 065
     Dates: start: 20121130, end: 20121130

REACTIONS (1)
  - Death [Fatal]
